FAERS Safety Report 13389009 (Version 1)
Quarter: 2017Q1

REPORT INFORMATION
  Report Type: Spontaneous
  Country: BR (occurrence: BR)
  Receive Date: 20170330
  Receipt Date: 20170330
  Transmission Date: 20170429
  Serious: Yes (Other)
  Sender: FDA-Public Use
  Company Number: BR-PFIZER INC-2017118099

PATIENT
  Age: 34 Year
  Sex: Female

DRUGS (1)
  1. DOSTINEX [Suspect]
     Active Substance: CABERGOLINE

REACTIONS (2)
  - Blood prolactin increased [Unknown]
  - Pituitary tumour [Unknown]

NARRATIVE: CASE EVENT DATE: 2016
